FAERS Safety Report 20876009 (Version 1)
Quarter: 2022Q2

REPORT INFORMATION
  Report Type: Spontaneous
  Country: CN (occurrence: CN)
  Receive Date: 20220526
  Receipt Date: 20220526
  Transmission Date: 20220721
  Serious: Yes (Other)
  Sender: FDA-Public Use
  Company Number: CN-SA-SAC20220524000171

PATIENT
  Age: 63 Year
  Sex: Female
  Weight: 77 kg

DRUGS (1)
  1. ENOXAPARIN SODIUM [Suspect]
     Active Substance: ENOXAPARIN SODIUM
     Indication: Coronary artery disease
     Dosage: 4000 U, BID
     Route: 058
     Dates: start: 20220411, end: 20220413

REACTIONS (1)
  - Erythema induratum [Not Recovered/Not Resolved]

NARRATIVE: CASE EVENT DATE: 20220413
